FAERS Safety Report 6388365-5 (Version None)
Quarter: 2009Q4

REPORT INFORMATION
  Report Type: 
  Country: None (occurrence: None)
  Receive Date: 20091005
  Receipt Date: 20090925
  Transmission Date: 20100525
  Serious: Yes (Other)
  Sender: FDA-Public Use
  Company Number: US-SANOFI-SYNTHELABO-A03200904397

PATIENT
  Age: 33 Year
  Sex: Male
  Weight: 87.1 kg

DRUGS (9)
  1. ZANAFLEX [Suspect]
     Indication: FIBROMYALGIA
     Route: 048
     Dates: start: 19960101
  2. KLONOPIN [Suspect]
     Indication: DRUG USE FOR UNKNOWN INDICATION
     Route: 048
     Dates: start: 20040101
  3. SINGLET [Suspect]
     Indication: SEASONAL ALLERGY
     Dosage: UNK
     Route: 048
     Dates: start: 19990101
  4. OXYCODONE HCL AND ACETAMINOPHEN [Suspect]
     Indication: BREAKTHROUGH PAIN
     Dosage: 10MG/325MG, 1 TO 2 TABS THREE TIMES A DAY
     Route: 048
     Dates: start: 19960101
  5. NEURONTIN [Suspect]
     Indication: FIBROMYALGIA
     Dosage: ON AN INCREASING DOSE EVERY THREE DAYS
     Route: 048
     Dates: start: 20090825
  6. AMBIEN [Suspect]
     Indication: DRUG USE FOR UNKNOWN INDICATION
     Dosage: UNK
     Route: 048
     Dates: start: 19990101
  7. OPANA ER [Suspect]
     Indication: PAIN
     Route: 048
     Dates: start: 20090812, end: 20090824
  8. OPANA ER [Suspect]
     Dosage: 30 MG, 2 IN MORNING, 1 AT MID-DAY, TWO AT NIGHT
     Route: 048
     Dates: start: 20090824, end: 20090825
  9. OPANA ER [Suspect]
     Route: 048
     Dates: start: 20090825, end: 20090827

REACTIONS (8)
  - CONFUSIONAL STATE [None]
  - CONTUSION [None]
  - FACIAL BONES FRACTURE [None]
  - HAEMOPTYSIS [None]
  - LOSS OF CONSCIOUSNESS [None]
  - OPEN WOUND [None]
  - PERIORBITAL HAEMATOMA [None]
  - ROAD TRAFFIC ACCIDENT [None]
